FAERS Safety Report 22286740 (Version 2)
Quarter: 2023Q2

REPORT INFORMATION
  Report Type: Spontaneous
  Country: DE (occurrence: DE)
  Receive Date: 20230505
  Receipt Date: 20230515
  Transmission Date: 20230722
  Serious: Yes (Life-Threatening, Disabling, Other)
  Sender: FDA-Public Use
  Company Number: DE-AUROBINDO-AUR-APL-2023-034114

PATIENT
  Sex: Female

DRUGS (1)
  1. LAMOTRIGINE [Suspect]
     Active Substance: LAMOTRIGINE
     Indication: Antidepressant therapy
     Dosage: UNK
     Route: 065
     Dates: start: 2014, end: 2019

REACTIONS (21)
  - Seizure [Not Recovered/Not Resolved]
  - Suicidal ideation [Unknown]
  - Personality change [Unknown]
  - Lymphadenopathy [Unknown]
  - Anxiety [Unknown]
  - Paranoia [Unknown]
  - Noninfective encephalitis [Not Recovered/Not Resolved]
  - Iatrogenic injury [Unknown]
  - Cognitive disorder [Not Recovered/Not Resolved]
  - Physical disability [Not Recovered/Not Resolved]
  - Pain [Not Recovered/Not Resolved]
  - Drug intolerance [Not Recovered/Not Resolved]
  - Food intolerance [Not Recovered/Not Resolved]
  - Chronic fatigue syndrome [Not Recovered/Not Resolved]
  - Mast cell activation syndrome [Not Recovered/Not Resolved]
  - Burning sensation [Not Recovered/Not Resolved]
  - Social problem [Not Recovered/Not Resolved]
  - Multisystem inflammatory syndrome [Not Recovered/Not Resolved]
  - Loss of personal independence in daily activities [Not Recovered/Not Resolved]
  - Off label use [Unknown]
  - Drug ineffective [Unknown]
